FAERS Safety Report 5266346-2 (Version None)
Quarter: 2007Q1

REPORT INFORMATION
  Report Type: 
  Country: None (occurrence: None)
  Receive Date: 20070315
  Receipt Date: 20070308
  Transmission Date: 20070707
  Serious: Yes (Death)
  Sender: FDA-Public Use
  Company Number: GB-BAYER-200610754BNE

PATIENT
  Age: 77 Year
  Sex: Male

DRUGS (22)
  1. ASPIRIN [Suspect]
     Route: 065
  2. ATORVASTATIN CALCIUM [Suspect]
     Route: 065
  3. BECLOMETHASONE DIPROPIONATE [Suspect]
     Route: 055
  4. COMBIVENT METERED AEROSOL [Suspect]
     Indication: CHRONIC OBSTRUCTIVE PULMONARY DISEASE
     Route: 055
     Dates: start: 20030617, end: 20040513
  5. DEXAMETHASONE [Suspect]
     Route: 065
  6. DILTIAZEM [Suspect]
     Route: 065
  7. DOSULEPIN [Suspect]
     Route: 065
  8. FRUMIL [Suspect]
     Route: 065
  9. FUROSEMIDE [Suspect]
     Route: 065
  10. GAVISCON [Suspect]
     Route: 065
  11. LACTULOSE [Suspect]
     Route: 065
  12. LANSOPRAZOLE [Suspect]
     Route: 065
  13. METOCLOPRAMIDE [Suspect]
     Route: 065
  14. NITROLINGUAL [Suspect]
     Route: 065
  15. NOZINAN [Suspect]
     Route: 065
  16. OXYCODONE HCL [Suspect]
     Route: 065
  17. OXYGEN [Suspect]
     Route: 055
  18. SALBUTAMOL [Suspect]
     Route: 055
  19. SPIRIVA [Suspect]
     Route: 055
     Dates: start: 20030617
  20. SPIRONOLACTONE [Suspect]
     Route: 065
  21. SYMBICORT [Suspect]
     Route: 055
  22. TEMAZEPAM [Suspect]
     Route: 065

REACTIONS (1)
  - MESOTHELIOMA [None]
